FAERS Safety Report 6486624-9 (Version None)
Quarter: 2009Q4

REPORT INFORMATION
  Report Type: 
  Country: None (occurrence: None)
  Receive Date: 20091210
  Receipt Date: 20091203
  Transmission Date: 20100525
  Serious: Yes (Hospitalization, Disabling)
  Sender: FDA-Public Use
  Company Number: RU-ROCHE-625612

PATIENT
  Sex: Male
  Weight: 72 kg

DRUGS (5)
  1. METHOXY POLYETHYLENE GLYCOL-EPOETIN BETA [Suspect]
     Dosage: DRUG NAME REPORTED:C.E.R.A.,  DATE OF LAST DOSE PRIOR TO SAE: 25 FEB.09
     Route: 058
     Dates: start: 20090130
  2. METOPROLOL [Concomitant]
     Dates: start: 20081201, end: 20090225
  3. AMLODIPINE [Concomitant]
     Dates: start: 20081201, end: 20090225
  4. CALCIUM CARBONATE [Concomitant]
     Dosage: DRUG NAME REPORTED: CALCIUM CARBONAT
     Dates: start: 20081222, end: 20090225
  5. OMEPRAZOLE [Concomitant]
     Dates: start: 20081201

REACTIONS (3)
  - GENERAL PHYSICAL HEALTH DETERIORATION [None]
  - ISCHAEMIC STROKE [None]
  - RENAL FAILURE CHRONIC [None]
